FAERS Safety Report 6371766-9 (Version None)
Quarter: 2009Q3

REPORT INFORMATION
  Report Type: 
  Country: None (occurrence: None)
  Receive Date: 20090918
  Receipt Date: 20090918
  Transmission Date: 20100115
  Serious: Yes (Death)
  Sender: FDA-Public Use
  Company Number: None

PATIENT
  Sex: Male

DRUGS (11)
  1. REVLIMID [Suspect]
     Indication: MULTIPLE MYELOMA
     Dosage: REVLIMID 25 MG EVERY OTHER DAY ORAL
     Route: 048
     Dates: start: 20060817, end: 20080201
  2. REVLIMID [Suspect]
     Indication: MULTIPLE MYELOMA
     Dosage: REVLIMID 25 MG EVERY OTHER DAY ORAL
     Route: 048
     Dates: start: 20090327, end: 20090616
  3. DEXAMETHASONE [Concomitant]
  4. ALLOPURINOL [Concomitant]
  5. SIMVASTATIN [Concomitant]
  6. GLIPIZIDE [Concomitant]
  7. ASPIRIN [Concomitant]
  8. PROCRIT [Concomitant]
  9. MORPHINE [Concomitant]
  10. FAMOTIDINE [Concomitant]
  11. FLUOXETINE [Concomitant]

REACTIONS (6)
  - ANAEMIA [None]
  - CONFUSIONAL STATE [None]
  - DELIRIUM [None]
  - FALL [None]
  - PANCYTOPENIA [None]
  - RENAL FAILURE ACUTE [None]
